FAERS Safety Report 6128861-9 (Version None)
Quarter: 2009Q1

REPORT INFORMATION
  Report Type: 
  Country: None (occurrence: None)
  Receive Date: 20090320
  Receipt Date: 20090312
  Transmission Date: 20090719
  Serious: Yes (Life-Threatening)
  Sender: FDA-Public Use
  Company Number: CIO09005693

PATIENT
  Sex: Female

DRUGS (1)
  1. PEPTO-BISMOL ORIGINAL FORMULA, ORIGINAL FLAVOR (BISMUTH SUBSALICYLATE [Suspect]
     Indication: ABDOMINAL DISCOMFORT
     Dosage: DOSE, 2/DAY FOR 1 DAY, ORAL
     Route: 048
     Dates: start: 20090306, end: 20090306

REACTIONS (3)
  - CHEST DISCOMFORT [None]
  - DRUG HYPERSENSITIVITY [None]
  - RESPIRATORY ARREST [None]
